FAERS Safety Report 5267705-4 (Version None)
Quarter: 2007Q1

REPORT INFORMATION
  Report Type: 
  Country: None (occurrence: None)
  Receive Date: 20070316
  Receipt Date: 20070306
  Transmission Date: 20070707
  Serious: Yes (Life-Threatening, Hospitalization)
  Sender: FDA-Public Use
  Company Number: JP-PFIZER INC-2006154727

PATIENT
  Sex: Female
  Weight: 56 kg

DRUGS (13)
  1. DIFLUCAN [Suspect]
     Indication: FUNGAEMIA
     Dosage: DAILY DOSE:100MG-FREQ:FREQUENCY: QD
     Route: 048
     Dates: start: 20061212, end: 20061215
  2. PRODIF [Suspect]
     Indication: FUNGAEMIA
     Route: 042
     Dates: start: 20061206, end: 20061210
  3. VFEND [Suspect]
     Route: 048
     Dates: start: 20061220, end: 20061228
  4. WARFARIN SODIUM [Suspect]
     Indication: CEREBRAL INFARCTION
     Route: 042
     Dates: start: 20061001, end: 20061220
  5. LIVALO [Concomitant]
     Route: 048
  6. DIAMOX [Concomitant]
     Route: 048
  7. CARDENALIN [Concomitant]
     Route: 048
  8. ALLOPURINOL [Concomitant]
     Route: 048
  9. DIART [Concomitant]
     Route: 048
  10. ASPIRIN [Concomitant]
     Route: 048
  11. ROCALTROL [Concomitant]
     Route: 048
  12. DIANEAL [Concomitant]
  13. EXTRANEAL [Concomitant]

REACTIONS (1)
  - HAEMORRHAGIC DIATHESIS [None]
